FAERS Safety Report 8558226-1 (Version None)
Quarter: 2012Q3

REPORT INFORMATION
  Report Type: 
  Country: None (occurrence: None)
  Receive Date: 20120727
  Receipt Date: 20120727
  Transmission Date: 20120928
  Serious: No
  Sender: FDA-Public Use
  Company Number: None

PATIENT
  Sex: Female

DRUGS (1)
  1. CLARITHROMYCIN [Suspect]
     Indication: OTITIS EXTERNA
     Dosage: 500MG BID ORALLY
     Route: 048
     Dates: start: 20120711, end: 20120713

REACTIONS (3)
  - SECRETION DISCHARGE [None]
  - SWOLLEN TONGUE [None]
  - SKIN ULCER [None]
